FAERS Safety Report 23032075 (Version 1)
Quarter: 2023Q4

REPORT INFORMATION
  Report Type: Report from Study
  Country: US (occurrence: US)
  Receive Date: 20231005
  Receipt Date: 20231005
  Transmission Date: 20240110
  Serious: Yes (Hospitalization)
  Sender: FDA-Public Use
  Company Number: US-ABBVIE-5428986

PATIENT
  Age: 59 Year
  Sex: Male
  Weight: 104 kg

DRUGS (30)
  1. VENCLEXTA [Suspect]
     Active Substance: VENETOCLAX
     Indication: Mantle cell lymphoma
     Dosage: CYCLE 1 STARTED?LAST ADMINISTRATION DATE: 2021
     Route: 048
     Dates: start: 20210520
  2. VENCLEXTA [Suspect]
     Active Substance: VENETOCLAX
     Indication: Mantle cell lymphoma
     Dosage: LAST ADMINISTRATION DATE: JULY 2021
     Route: 048
     Dates: start: 20210713
  3. VENCLEXTA [Suspect]
     Active Substance: VENETOCLAX
     Indication: Mantle cell lymphoma
     Dosage: INCREASED WEEKLY IN A STEPWISE  FASHION (RAMP-UP) TO 100 MG PER DAY?LAST ADMINISTRATION DATE: JUL...
     Route: 048
     Dates: start: 20210720
  4. VENCLEXTA [Suspect]
     Active Substance: VENETOCLAX
     Indication: Mantle cell lymphoma
     Dosage: THEN TO 200 MG PER DAY?LAST ADMINISTRATION DATE: 2021
     Route: 048
     Dates: start: 20210727
  5. VENCLEXTA [Suspect]
     Active Substance: VENETOCLAX
     Indication: Mantle cell lymphoma
     Dosage: AND FINALLY TO 400 MG PER DAY
     Route: 048
     Dates: start: 20210907
  6. VENCLEXTA [Suspect]
     Active Substance: VENETOCLAX
     Indication: Mantle cell lymphoma
     Dosage: TAKE 4 TABLETS DAILY
     Route: 048
     Dates: start: 20230714
  7. ELIQUIS [Concomitant]
     Active Substance: APIXABAN
     Indication: Product used for unknown indication
     Dosage: TAKE 5 MG TOTAL BY MOUTH TWO TIMES A DAY (PATIENT NOT TAKING REPORTED ON 28-?AUG-2023)
     Route: 048
  8. ATIVAN [Concomitant]
     Active Substance: LORAZEPAM
     Indication: Anxiety
     Dosage: TAKE 1 TABLET (0.5 MG TOTAL)BY MOUTH EVERY 6 (SIX).HOURS IF NEEDED FOR ANXIETY: MAX? DAILY AMOUNT...
     Route: 048
     Dates: start: 20230922
  9. ZYLOPRIM [Concomitant]
     Active Substance: ALLOPURINOL
     Indication: Product used for unknown indication
     Dosage: TAKE 1 TABLET (300 MG TOTAL) BY MOUTH 1 (ONE) TIME EACH DAY. TAKE 1 TABLET BY? MOUTH EVERY DAY. S...
     Route: 048
  10. ZYRTEC [Concomitant]
     Active Substance: CETIRIZINE HYDROCHLORIDE
     Indication: Product used for unknown indication
     Dosage: TAKE 1 TABLET (10 MG TOTAL) BY MOUTH AT BEDTIME
     Route: 048
  11. VITAMIN D3 [Concomitant]
     Active Substance: CHOLECALCIFEROL
     Indication: Product used for unknown indication
     Dosage: 25 MCG (1000 UNIT) TABLET?TAKE 5 TABLETS (5,000 UNITS TOTAL) BY MOUTH 1 (ONE) TIME EACH DAY IN TH...
     Route: 048
  12. TRICOR [Concomitant]
     Active Substance: FENOFIBRATE
     Indication: Product used for unknown indication
     Dosage: TAKE 1 TABLET (145 MG TOTAL) BY MOUTH 1 (ONE) TIME EACH DAY IN THE MORNING
     Route: 048
     Dates: start: 20210108
  13. FLONASE [Concomitant]
     Active Substance: FLUTICASONE PROPIONATE
     Indication: Product used for unknown indication
     Dosage: 50 MCG/ACTUATION NASAL SPRAY?ADMINISTER 2 SPRAYS INTO EACH NOSTRIL 1 (ONE) TIME EACH DAY IN THE M...
     Route: 045
  14. FOLVITE [Concomitant]
     Active Substance: FOLIC ACID
     Indication: Product used for unknown indication
     Dosage: 400 MCG TABLET (0.4MG)?TAKE 2 TABLETS (0.8 MG TOTAL) BY MOUTH AT BEDTIME
     Route: 048
  15. EMLA [Concomitant]
     Active Substance: LIDOCAINE\PRILOCAINE
     Indication: Product used for unknown indication
     Dosage: 2.5-2.5 % CREAM?APPLY TO INFUSAPORT SITE, PRIOR TO USE AS NEEDED
     Dates: start: 20221123
  16. PRILOSEC [Concomitant]
     Active Substance: OMEPRAZOLE MAGNESIUM
     Indication: Product used for unknown indication
     Dosage: TAKE 1 CAPSULE BY MOUTH TWICE A DAY?40 MG DR CAPSULE
     Route: 048
     Dates: start: 20220908
  17. ZOFRAN [Concomitant]
     Active Substance: ONDANSETRON HYDROCHLORIDE
     Indication: Product used for unknown indication
     Dosage: ODT
     Route: 048
  18. IMBRUVICA [Suspect]
     Active Substance: IBRUTINIB
     Indication: Product used for unknown indication
     Dosage: TAKE 1 TABLET (560 MG TOTAL) BY MOUTH 1 (ONE) TIME EACH DAY TAKE WITH A GLASS OF? WATER AT APPROX...
     Route: 048
     Dates: start: 20230725
  19. RITUXAN [Suspect]
     Active Substance: RITUXIMAB
     Indication: Mantle cell lymphoma
     Dosage: CYCLE ONE?LAST ADMINISTRATION DATE: MAR 2020
     Route: 065
     Dates: start: 20200302
  20. RITUXAN [Suspect]
     Active Substance: RITUXIMAB
     Indication: Mantle cell lymphoma
     Dosage: CYCLE 2?LAST ADMINISTRATION DATE: 2020
     Route: 065
     Dates: start: 20200330
  21. RITUXAN [Suspect]
     Active Substance: RITUXIMAB
     Indication: Mantle cell lymphoma
     Dosage: CYCLE 3?LAST ADMINISTRATION DATE: 2020
     Route: 065
     Dates: start: 20200427
  22. RITUXAN [Suspect]
     Active Substance: RITUXIMAB
     Indication: Mantle cell lymphoma
     Dosage: CYCLE 4?LAST ADMINISTRATION DATE: 2020
     Route: 065
     Dates: start: 20200526
  23. RITUXAN [Suspect]
     Active Substance: RITUXIMAB
     Indication: Mantle cell lymphoma
     Dosage: CYCLE 5?LAST ADMINISTRATION DATE: 2020
     Route: 065
     Dates: start: 20200623
  24. RITUXAN [Suspect]
     Active Substance: RITUXIMAB
     Indication: Mantle cell lymphoma
     Dosage: RECEIVE A TOTAL OF 2 CYCLES GIVEN 21 DAYS APART?LAST ADMINISTRATION DATE: 2020
     Route: 065
     Dates: start: 20200814
  25. RITUXAN [Suspect]
     Active Substance: RITUXIMAB
     Indication: Mantle cell lymphoma
     Dosage: MAINTENANCE 24-DEC-2020, 19-FEB-2021?LAST ADMINISTRATION DATE: 2020
     Route: 065
     Dates: start: 20200914
  26. RITUXAN [Suspect]
     Active Substance: RITUXIMAB
     Indication: Mantle cell lymphoma
     Dosage: MAINTENANCE
     Route: 065
     Dates: start: 20201224
  27. RITUXAN [Suspect]
     Active Substance: RITUXIMAB
     Indication: Mantle cell lymphoma
     Route: 065
     Dates: start: 20210219
  28. ZOVIRAX [Concomitant]
     Active Substance: ACYCLOVIR
     Indication: Product used for unknown indication
     Dosage: 400 MG, ORAL, 2 TIMES DAILY, O OF 1 CYCLE
     Route: 048
  29. BACTRIM DS [Concomitant]
     Active Substance: SULFAMETHOXAZOLE\TRIMETHOPRIM
     Indication: Product used for unknown indication
     Dosage: 800-160 MG PER TABLET?0 OF 1 CYCLE
     Route: 048
  30. SEPTRA DS [Concomitant]
     Active Substance: SULFAMETHOXAZOLE\TRIMETHOPRIM
     Indication: Product used for unknown indication
     Dosage: 800-160 MG PER TABLET?0 OF 1 CYCLE
     Route: 048

REACTIONS (8)
  - Bacterial infection [Unknown]
  - Off label use [Unknown]
  - Anxiety [Unknown]
  - Hypertension [Unknown]
  - Muscle spasms [Unknown]
  - Full blood count abnormal [Unknown]
  - Metabolic function test abnormal [Unknown]
  - Blood pressure abnormal [Unknown]

NARRATIVE: CASE EVENT DATE: 20220827
